FAERS Safety Report 15565436 (Version 1)
Quarter: 2018Q4

REPORT INFORMATION
  Report Type: Spontaneous
  Country: US (occurrence: US)
  Receive Date: 20181025
  Receipt Date: 20181025
  Transmission Date: 20190205
  Serious: No
  Sender: FDA-Public Use
  Company Number: None

PATIENT
  Age: 8 Year
  Sex: Female

DRUGS (1)
  1. TABLOID [Suspect]
     Active Substance: THIOGUANINE
     Dates: start: 201810, end: 201810

REACTIONS (1)
  - Pyrexia [None]

NARRATIVE: CASE EVENT DATE: 20181009
